FAERS Safety Report 20813731 (Version 1)
Quarter: 2022Q2

REPORT INFORMATION
  Report Type: Spontaneous
  Country: US (occurrence: None)
  Receive Date: 20220510
  Receipt Date: 20220510
  Transmission Date: 20220720
  Serious: Yes (Other)
  Sender: FDA-Public Use
  Company Number: None

PATIENT
  Age: 58 Year
  Sex: Female
  Weight: 78.75 kg

DRUGS (6)
  1. OMEPRAZOLE [Suspect]
     Active Substance: OMEPRAZOLE
     Indication: Gastric pH decreased
     Dosage: OTHER QUANTITY : 2 TABLET(S);?FREQUENCY : TWICE A DAY;?
     Route: 048
     Dates: start: 20211001, end: 20220331
  2. OMEPRAZOLE [Concomitant]
     Active Substance: OMEPRAZOLE
  3. calcium citrate powder [Concomitant]
  4. vitamin d liquid drops [Concomitant]
  5. pure formula [Concomitant]
  6. PEPCID [Concomitant]
     Active Substance: FAMOTIDINE

REACTIONS (10)
  - Optic nerve disorder [None]
  - Headache [None]
  - Headache [None]
  - Eye pain [None]
  - Head discomfort [None]
  - Swelling face [None]
  - Paraesthesia [None]
  - Vision blurred [None]
  - Photopsia [None]
  - Tension headache [None]

NARRATIVE: CASE EVENT DATE: 20211029
